FAERS Safety Report 21421279 (Version 1)
Quarter: 2022Q4

REPORT INFORMATION
  Report Type: Other
  Country: CN (occurrence: CN)
  Receive Date: 20221007
  Receipt Date: 20221007
  Transmission Date: 20230112
  Serious: Yes (Other)
  Sender: FDA-Public Use
  Company Number: CN-ASTELLAS PHARMA EUROPE B.V.-2022US035469

PATIENT
  Age: 48 Year
  Sex: Female
  Weight: 60 kg

DRUGS (5)
  1. MIRABEGRON [Suspect]
     Active Substance: MIRABEGRON
     Indication: Urinary tract infection
     Route: 048
     Dates: start: 20220917, end: 20220924
  2. MIRABEGRON [Suspect]
     Active Substance: MIRABEGRON
     Dosage: UNK UNK, UNKNOWN FREQ.
     Route: 048
     Dates: start: 20220924, end: 20220925
  3. TAMSULOSIN [Suspect]
     Active Substance: TAMSULOSIN
     Indication: Urinary tract infection
     Dosage: 0.2 MG, ONCE DAILY
     Route: 048
     Dates: start: 20220917, end: 20220924
  4. TAMSULOSIN [Suspect]
     Active Substance: TAMSULOSIN
     Dosage: UNK UNK, UNKNOWN FREQ.
     Route: 048
     Dates: start: 20220924, end: 20220925
  5. Long qing [Concomitant]
     Indication: Urinary tract infection
     Route: 048
     Dates: start: 20220917, end: 20220926

REACTIONS (3)
  - Cardiac arrest [Recovered/Resolved]
  - Angina pectoris [Recovered/Resolved]
  - Off label use [Unknown]

NARRATIVE: CASE EVENT DATE: 20220917
